FAERS Safety Report 5491511-9 (Version None)
Quarter: 2007Q4

REPORT INFORMATION
  Report Type: 
  Country: None (occurrence: None)
  Receive Date: 20071022
  Receipt Date: 20071016
  Transmission Date: 20080405
  Serious: Yes (Life-Threatening, Hospitalization)
  Sender: FDA-Public Use
  Company Number: PHBS2007DK17203

PATIENT
  Age: 60 Year
  Sex: Male

DRUGS (3)
  1. EXFORGE [Suspect]
     Indication: HYPERTENSION
     Dosage: 1 TABLET/DAY
     Route: 048
     Dates: start: 20070829, end: 20070909
  2. MAREVAN [Concomitant]
     Dosage: 2.5 MG, UNK
     Route: 048
     Dates: start: 20030403
  3. LIPITOR [Concomitant]
     Dosage: 10 MG, QD
     Route: 048
     Dates: start: 20030403

REACTIONS (3)
  - BLOOD CREATINE PHOSPHOKINASE INCREASED [None]
  - GRAND MAL CONVULSION [None]
  - INTERNATIONAL NORMALISED RATIO INCREASED [None]
